FAERS Safety Report 8075592-4 (Version None)
Quarter: 2012Q1

REPORT INFORMATION
  Report Type: 
  Country: None (occurrence: None)
  Receive Date: 20120127
  Receipt Date: 20120119
  Transmission Date: 20120608
  Serious: Yes (Hospitalization)
  Sender: FDA-Public Use
  Company Number: US-BAYER-2011-045221

PATIENT
  Age: 27 Year
  Sex: Female
  Weight: 73.923 kg

DRUGS (5)
  1. NAPROSYN [Concomitant]
     Dosage: 500 MG, BID
     Dates: start: 20080726, end: 20080805
  2. MOTRIN [Concomitant]
  3. YAZ [Suspect]
     Indication: MENORRHAGIA
  4. YAZ [Suspect]
     Indication: CONTRACEPTION
     Dosage: UNK
     Dates: start: 20071115, end: 20080805
  5. METOPROLOL TARTRATE [Concomitant]
     Dosage: UNK
     Dates: start: 20000806, end: 20080809

REACTIONS (7)
  - EMOTIONAL DISTRESS [None]
  - CHEST PAIN [None]
  - PAIN [None]
  - ANXIETY [None]
  - PULMONARY EMBOLISM [None]
  - GENERAL PHYSICAL HEALTH DETERIORATION [None]
  - DYSPNOEA [None]
